FAERS Safety Report 19882318 (Version 7)
Quarter: 2021Q4

REPORT INFORMATION
  Report Type: Report from Study
  Country: US (occurrence: US)
  Receive Date: 20210925
  Receipt Date: 20211124
  Transmission Date: 20220303
  Serious: Yes (Hospitalization)
  Sender: FDA-Public Use
  Company Number: NVSC2021US200400

PATIENT
  Age: 73 Year
  Sex: Female
  Weight: 101.1 kg

DRUGS (10)
  1. ENTRESTO [Suspect]
     Active Substance: SACUBITRIL\VALSARTAN
     Indication: Cardiac failure acute
     Dosage: UNK
     Route: 048
     Dates: start: 20210407
  2. ENTRESTO [Suspect]
     Active Substance: SACUBITRIL\VALSARTAN
     Dosage: UNK
     Route: 048
     Dates: start: 20210906
  3. ASPIRIN [Concomitant]
     Active Substance: ASPIRIN
     Indication: Cardiac failure
     Dosage: UNK
     Route: 065
     Dates: start: 20180216
  4. FLONASE [Concomitant]
     Active Substance: FLUTICASONE PROPIONATE
     Indication: Seasonal allergy
     Dosage: UNK
     Route: 065
     Dates: start: 20210614
  5. LASIX [Concomitant]
     Active Substance: FUROSEMIDE
     Indication: Cardiac failure congestive
     Dosage: UNK
     Route: 065
     Dates: start: 20210617, end: 20210902
  6. LASIX [Concomitant]
     Active Substance: FUROSEMIDE
     Indication: Cardiac failure
     Dosage: UNK
     Route: 065
     Dates: start: 20210407, end: 20210905
  7. METOLAZONE [Concomitant]
     Active Substance: METOLAZONE
     Indication: Cardiac failure congestive
     Dosage: UNK
     Route: 065
     Dates: start: 20210617, end: 20210901
  8. GABAPENTIN [Concomitant]
     Active Substance: GABAPENTIN
     Indication: Type 2 diabetes mellitus
     Dosage: UNK
     Route: 065
     Dates: start: 20210901, end: 20211029
  9. NITROGLYCERIN [Concomitant]
     Active Substance: NITROGLYCERIN
     Indication: Coronary artery disease
     Dosage: UNK
     Route: 065
     Dates: start: 20180302
  10. PLAVIX [Concomitant]
     Active Substance: CLOPIDOGREL BISULFATE
     Indication: Coronary artery disease
     Dosage: UNK
     Route: 065
     Dates: start: 20210206

REACTIONS (1)
  - Chronic kidney disease [Recovered/Resolved]

NARRATIVE: CASE EVENT DATE: 20210901
